FAERS Safety Report 6823195-9 (Version None)
Quarter: 2010Q3

REPORT INFORMATION
  Report Type: 
  Country: None (occurrence: None)
  Receive Date: 20100708
  Receipt Date: 20100701
  Transmission Date: 20110219
  Serious: Yes (Hospitalization)
  Sender: FDA-Public Use
  Company Number: US-GILEAD-2010-0030086

PATIENT
  Sex: Female
  Weight: 51.756 kg

DRUGS (19)
  1. LETAIRIS [Suspect]
     Indication: PULMONARY ARTERIAL HYPERTENSION
     Route: 048
     Dates: start: 20080725
  2. DIGOXIN [Concomitant]
  3. COREG [Concomitant]
  4. ASPIRIN [Concomitant]
  5. LASIX [Concomitant]
  6. OXYGEN [Concomitant]
  7. CLINDAMYCIN [Concomitant]
  8. CEFUROXIME AXETIL [Concomitant]
  9. SYNTHROID [Concomitant]
  10. NEURONTIN [Concomitant]
  11. ACYCLOVIR [Concomitant]
  12. COLACE [Concomitant]
  13. OCUVITE EXTRA [Concomitant]
  14. MAGNESIUM OXIDE [Concomitant]
  15. POTASSIUM CHLORIDE [Concomitant]
  16. MULTI-VITAMIN [Concomitant]
  17. VITAMIN B-12 [Concomitant]
  18. VITAMIN E [Concomitant]
  19. IRON [Concomitant]

REACTIONS (2)
  - CEREBROVASCULAR ACCIDENT [None]
  - THROMBOSIS [None]
